FAERS Safety Report 18937960 (Version 1)
Quarter: 2021Q1

REPORT INFORMATION
  Report Type: Spontaneous
  Country: DE (occurrence: DE)
  Receive Date: 20210224
  Receipt Date: 20210224
  Transmission Date: 20210420
  Serious: Yes (Other)
  Sender: FDA-Public Use
  Company Number: DE-PFIZER INC-2021164826

PATIENT
  Age: 33 Year
  Sex: Female
  Weight: 74 kg

DRUGS (1)
  1. CYTOTEC [Suspect]
     Active Substance: MISOPROSTOL
     Indication: LABOUR INDUCTION
     Dosage: FREQ:{TOTAL};3X50 ?G
     Route: 048
     Dates: start: 20200623

REACTIONS (7)
  - Haemorrhage [Recovered/Resolved]
  - Meconium in amniotic fluid [Recovered/Resolved]
  - Maternal exposure during pregnancy [Unknown]
  - Somnolence [Recovered/Resolved]
  - Premature separation of placenta [Recovered/Resolved]
  - Off label use [Unknown]
  - Uterine tachysystole [Recovered/Resolved]

NARRATIVE: CASE EVENT DATE: 202006
